FAERS Safety Report 5500091-0 (Version None)
Quarter: 2007Q4

REPORT INFORMATION
  Report Type: 
  Country: None (occurrence: None)
  Receive Date: 20071024
  Receipt Date: 20071008
  Transmission Date: 20080405
  Serious: Yes (Hospitalization)
  Sender: FDA-Public Use
  Company Number: 8027413

PATIENT
  Age: 53 Year
  Sex: Female

DRUGS (10)
  1. ATARAX /00058401/. MFR: NOT SPECIFIED [Suspect]
     Indication: ANGIOEDEMA
     Dosage: ONCE IV
     Route: 042
     Dates: start: 20070521, end: 20070521
  2. ATARAX [Suspect]
     Indication: ANGIOEDEMA
     Dosage: 25 MG 3/D PO
     Route: 048
     Dates: start: 20070521, end: 20070530
  3. XYZALL /01530201/. MFR: NOT SPECIFIED [Suspect]
     Indication: DRUG RASH WITH EOSINOPHILIA AND SYSTEMIC SYMPTOMS
     Dosage: 1 DF /D PO
     Route: 048
     Dates: start: 20070530, end: 20070601
  4. IBUPROFENE. MFR: NOT SPECIFIED [Suspect]
     Dosage: PO
     Route: 048
     Dates: start: 20070519, end: 20070521
  5. PROZAC [Concomitant]
  6. SOLU-MEDROL [Concomitant]
  7. SOLUPRED /00016209/ [Concomitant]
  8. BETNEVAL /00008503/ [Concomitant]
  9. VOLUVEN /00375601/ [Concomitant]
  10. ZANTAC [Concomitant]

REACTIONS (3)
  - ANAPHYLACTIC REACTION [None]
  - DRUG RASH WITH EOSINOPHILIA AND SYSTEMIC SYMPTOMS [None]
  - DYSPHAGIA [None]
